FAERS Safety Report 8783728 (Version 1)
Quarter: 2012Q4

REPORT INFORMATION
  Report Type: Spontaneous
  Country: US (occurrence: None)
  Receive Date: 20120906
  Receipt Date: 20120906
  Transmission Date: 20130627
  Serious: Yes (Hospitalization)
  Sender: FDA-Public Use
  Company Number: None

PATIENT
  Age: 75 Year
  Sex: Male

DRUGS (1)
  1. ADCIRCA [Suspect]
     Route: 048
     Dates: start: 20120612, end: 20120813

REACTIONS (2)
  - Nasal congestion [None]
  - Oxygen saturation decreased [None]
